FAERS Safety Report 4621519-4 (Version None)
Quarter: 2005Q1

REPORT INFORMATION
  Report Type: 
  Country: None (occurrence: None)
  Receive Date: 20050328
  Receipt Date: 20040614
  Transmission Date: 20050727
  Serious: No
  Sender: FDA-Public Use
  Company Number: 9797

PATIENT
  Age: 32 Year
  Sex: Female

DRUGS (2)
  1. METHOTREXATE [Suspect]
  2. OFLOXACIN HYDROCHLORIDE [Concomitant]

REACTIONS (2)
  - ALOPECIA [None]
  - OCULOMUCOCUTANEOUS SYNDROME [None]
